FAERS Safety Report 8958424 (Version 1)
Quarter: 2012Q4

REPORT INFORMATION
  Report Type: Spontaneous
  Country: US (occurrence: None)
  Receive Date: 20121205
  Receipt Date: 20121205
  Transmission Date: 20130627
  Serious: Yes (Hospitalization)
  Sender: FDA-Public Use
  Company Number: None

PATIENT
  Sex: Female
  Weight: 61.69 kg

DRUGS (2)
  1. CIPROFLOXACIN [Suspect]
     Dosage: 100 2xdaily
     Dates: start: 20121128, end: 20121203
  2. AUGMENTIN [Concomitant]

REACTIONS (2)
  - Dyspnoea [None]
  - Blood pressure increased [None]
